FAERS Safety Report 8229101-7 (Version None)
Quarter: 2012Q1

REPORT INFORMATION
  Report Type: 
  Country: None (occurrence: None)
  Receive Date: 20120322
  Receipt Date: 20120321
  Transmission Date: 20120608
  Serious: Yes (Hospitalization)
  Sender: FDA-Public Use
  Company Number: NL-JNJFOC-20111203679

PATIENT
  Age: 50 Year
  Sex: Female

DRUGS (17)
  1. DOCETAXEL [Suspect]
     Indication: BREAST CANCER
     Route: 065
     Dates: start: 20110718
  2. GRANISETRON [Suspect]
     Indication: PRODUCT USED FOR UNKNOWN INDICATION
     Route: 065
  3. ONDANSETRON [Suspect]
     Indication: PRODUCT USED FOR UNKNOWN INDICATION
     Route: 065
  4. ACETAMINOPHEN [Concomitant]
     Route: 065
     Dates: start: 20110829
  5. MAGNESIUM OXIDE [Concomitant]
     Route: 065
     Dates: start: 20110829
  6. DOCETAXEL [Suspect]
     Route: 065
     Dates: end: 20110808
  7. NEULASTA [Suspect]
     Indication: CHEMOTHERAPY
     Route: 065
  8. LEVOTHYROXINE SODIUM [Concomitant]
     Route: 065
     Dates: start: 20110829
  9. DEXAMETHASONE [Suspect]
     Indication: PRODUCT USED FOR UNKNOWN INDICATION
     Route: 065
  10. DOXORUBICIN HCL [Suspect]
     Route: 042
     Dates: start: 20110718
  11. CYCLOPHOSPHAMIDE [Suspect]
     Indication: BREAST CANCER
     Route: 042
     Dates: start: 20110718
  12. CYCLOPHOSPHAMIDE [Suspect]
     Route: 042
     Dates: end: 20110808
  13. TEMAZEPAM [Concomitant]
     Route: 065
     Dates: start: 20110830, end: 20110831
  14. DOXORUBICIN HCL [Suspect]
     Indication: BREAST CANCER
     Route: 042
     Dates: end: 20110808
  15. DOXORUBICIN HCL [Suspect]
     Route: 042
     Dates: start: 20110718
  16. DOXORUBICIN HCL [Suspect]
     Indication: BREAST CANCER
     Route: 042
     Dates: end: 20110808
  17. MOVICOLON [Concomitant]
     Route: 065
     Dates: start: 20110830

REACTIONS (1)
  - ANAL ABSCESS [None]
